FAERS Safety Report 13774836 (Version 3)
Quarter: 2018Q1

REPORT INFORMATION
  Report Type: Report from Study
  Country: JP (occurrence: JP)
  Receive Date: 20170720
  Receipt Date: 20180102
  Transmission Date: 20180508
  Serious: Yes (Death, Other)
  Sender: FDA-Public Use
  Company Number: JP-TEVA-784093ACC

PATIENT
  Age: 58 Year
  Sex: Female
  Weight: 52 kg

DRUGS (9)
  1. BENDAMUSTINE HYDROCHLORIDE. [Suspect]
     Active Substance: BENDAMUSTINE HYDROCHLORIDE
     Indication: PRODUCT USED FOR UNKNOWN INDICATION
     Route: 042
  2. IBRUTINIB [Suspect]
     Active Substance: IBRUTINIB
     Dosage: 560 MILLIGRAM DAILY;
     Route: 048
     Dates: start: 20170613, end: 20170614
  3. NORITREN [Concomitant]
     Active Substance: NORTRIPTYLINE HYDROCHLORIDE
     Indication: UTERINE CANCER
     Route: 048
  4. LYRICA [Concomitant]
     Active Substance: PREGABALIN
     Indication: UTERINE CANCER
     Dosage: 75 MILLIGRAM DAILY;
     Route: 048
  5. TRAMAL [Concomitant]
     Active Substance: TRAMADOL
     Indication: UTERINE CANCER
     Dosage: 150 MILLIGRAM DAILY;
     Route: 048
  6. MAGMITT [Concomitant]
     Active Substance: MAGNESIUM OXIDE
     Indication: UTERINE CANCER
     Dosage: 1500 MICROGRAM DAILY;
     Route: 048
  7. IBRUTINIB [Suspect]
     Active Substance: IBRUTINIB
     Indication: MANTLE CELL LYMPHOMA
     Dosage: 280 MILLIGRAM DAILY;
     Route: 048
     Dates: start: 20170530, end: 20170612
  8. LANSOPRAZOLE. [Concomitant]
     Active Substance: LANSOPRAZOLE
     Indication: UTERINE CANCER
     Dosage: 15 MICROGRAM DAILY;
     Route: 048
  9. NOVAMIN (PROCHLORPERAZINE MALEATE) [Concomitant]
     Active Substance: PROCHLORPERAZINE MALEATE
     Indication: UTERINE CANCER
     Dosage: 15 MICROGRAM DAILY;
     Route: 048

REACTIONS (3)
  - Metastases to central nervous system [Fatal]
  - Mantle cell lymphoma refractory [Fatal]
  - Lymphocyte count increased [Recovering/Resolving]

NARRATIVE: CASE EVENT DATE: 20170607
